FAERS Safety Report 11652999 (Version 6)
Quarter: 2019Q3

REPORT INFORMATION
  Report Type: Spontaneous
  Country: CA (occurrence: CA)
  Receive Date: 20151022
  Receipt Date: 20190813
  Transmission Date: 20191004
  Serious: Yes (Other)
  Sender: FDA-Public Use
  Company Number: CA-PFIZER INC-2015318978

PATIENT
  Age: 66 Year
  Sex: Female

DRUGS (4)
  1. METHOTREXATE SODIUM. [Suspect]
     Active Substance: METHOTREXATE SODIUM
     Dosage: 10 MILLIGRAM, QWK
     Route: 048
     Dates: start: 20150920
  2. ENBREL [Suspect]
     Active Substance: ETANERCEPT
     Indication: RHEUMATOID ARTHRITIS
     Dosage: UNK
     Route: 058
     Dates: start: 20100101, end: 20150920
  3. METHOTREXATE SODIUM. [Suspect]
     Active Substance: METHOTREXATE SODIUM
     Indication: RHEUMATOID ARTHRITIS
     Dosage: 20 MILLIGRAM, QWK
     Route: 048
     Dates: end: 20150920
  4. ARTHROTEC [Suspect]
     Active Substance: DICLOFENAC SODIUM\MISOPROSTOL
     Indication: RHEUMATOID ARTHRITIS
     Dosage: 75 MILLIGRAM, QD
     Route: 065

REACTIONS (10)
  - Pain in extremity [Not Recovered/Not Resolved]
  - Drug ineffective [Not Recovered/Not Resolved]
  - Condition aggravated [Not Recovered/Not Resolved]
  - Lower respiratory tract infection [Not Recovered/Not Resolved]
  - Nasopharyngitis [Not Recovered/Not Resolved]
  - Therapy non-responder [Not Recovered/Not Resolved]
  - Anxiety [Not Recovered/Not Resolved]
  - Influenza [Not Recovered/Not Resolved]
  - Rheumatoid arthritis [Not Recovered/Not Resolved]
  - Influenza like illness [Not Recovered/Not Resolved]

NARRATIVE: CASE EVENT DATE: 201509
